FAERS Safety Report 4728274-8 (Version None)
Quarter: 2005Q3

REPORT INFORMATION
  Report Type: 
  Country: None (occurrence: None)
  Receive Date: 20050727
  Receipt Date: 20050712
  Transmission Date: 20060218
  Serious: Yes (Death, Hospitalization)
  Sender: FDA-Public Use
  Company Number: 2005001306

PATIENT
  Age: 64 Year
  Sex: Male
  Weight: 77.1115 kg

DRUGS (5)
  1. TARCEVA [Suspect]
     Indication: NON-SMALL CELL LUNG CANCER
     Dosage: 150 MG (QD), ORAL
     Route: 048
     Dates: start: 20050610, end: 20050629
  2. VELCADE [Suspect]
     Dosage: 1.75-1.4 MG PER PROTOCOL, IMPLANT
     Dates: start: 20040827, end: 20050505
  3. DECADRON (DEXAMETHYASONE) [Concomitant]
  4. METOPROLOL TARTRATE [Concomitant]
  5. ZESTORETIC [Concomitant]

REACTIONS (3)
  - DISEASE PROGRESSION [None]
  - HAEMOPTYSIS [None]
  - THROMBOTIC THROMBOCYTOPENIC PURPURA [None]
